FAERS Safety Report 23198320 (Version 2)
Quarter: 2023Q4

REPORT INFORMATION
  Report Type: Other
  Country: US (occurrence: US)
  Receive Date: 20231117
  Receipt Date: 20231118
  Transmission Date: 20240109
  Serious: No
  Sender: FDA-Public Use
  Company Number: US-TRAVERE-2023TVT00455

PATIENT
  Age: 80 Year
  Sex: Female

DRUGS (1)
  1. FILSPARI [Suspect]
     Active Substance: SPARSENTAN
     Indication: IgA nephropathy
     Route: 048
     Dates: end: 20230831

REACTIONS (4)
  - Somnolence [Unknown]
  - Oedema peripheral [Unknown]
  - Pain in extremity [Unknown]
  - Incorrect dose administered [Unknown]
